FAERS Safety Report 6543074-4 (Version None)
Quarter: 2010Q1

REPORT INFORMATION
  Report Type: 
  Country: None (occurrence: None)
  Receive Date: 20100120
  Receipt Date: 20100107
  Transmission Date: 20100710
  Serious: Yes (Other)
  Sender: FDA-Public Use
  Company Number: PHHY2009CA46140

PATIENT
  Sex: Female

DRUGS (2)
  1. ACLASTA [Suspect]
     Indication: OSTEOPOROSIS
     Dosage: UNK
     Dates: start: 20081104
  2. ACLASTA [Suspect]
     Dosage: UNK
     Route: 042
     Dates: start: 20091104

REACTIONS (5)
  - BLOOD HEAVY METAL INCREASED [None]
  - BONE PAIN [None]
  - CHELATION THERAPY [None]
  - INFLUENZA LIKE ILLNESS [None]
  - PAIN [None]
